FAERS Safety Report 5304398-1 (Version None)
Quarter: 2007Q2

REPORT INFORMATION
  Report Type: 
  Country: None (occurrence: None)
  Receive Date: 20070423
  Receipt Date: 20070412
  Transmission Date: 20071010
  Serious: Yes (Death, Other)
  Sender: FDA-Public Use
  Company Number: AU-AVENTIS-200521256GDDC

PATIENT
  Age: 52 Year
  Sex: Female

DRUGS (5)
  1. TAXOTERE [Suspect]
  2. HERCEPTIN [Concomitant]
     Route: 042
     Dates: start: 20050505, end: 20051021
  3. HERCEPTIN [Concomitant]
     Route: 042
     Dates: start: 20051025, end: 20060505
  4. DEXAMETHASONE [Concomitant]
     Dosage: DOSE: 8 MG X6 DOSES IV AND PO
     Dates: start: 20050425
  5. ONDANSETRON [Concomitant]

REACTIONS (3)
  - AKINESIA [None]
  - BREAST CANCER [None]
  - PARALYSIS FLACCID [None]
